FAERS Safety Report 4786340-5 (Version None)
Quarter: 2005Q3

REPORT INFORMATION
  Report Type: 
  Country: None (occurrence: None)
  Receive Date: 20050927
  Receipt Date: 20050817
  Transmission Date: 20060218
  Serious: No
  Sender: FDA-Public Use
  Company Number: USA0508105817

PATIENT
  Age: 37 Year
  Sex: Male

DRUGS (1)
  1. STRATTERA [Suspect]
     Indication: ATTENTION DEFICIT/HYPERACTIVITY DISORDER
     Dosage: 40 MG
     Dates: start: 20050815

REACTIONS (5)
  - DRUG INEFFECTIVE [None]
  - HEADACHE [None]
  - INSOMNIA [None]
  - SEXUAL DYSFUNCTION [None]
  - STOMACH DISCOMFORT [None]
